FAERS Safety Report 9705190 (Version 1)
Quarter: 2013Q4

REPORT INFORMATION
  Report Type: Spontaneous
  Country: US (occurrence: US)
  Receive Date: 20131122
  Receipt Date: 20131122
  Transmission Date: 20140711
  Serious: Yes (Hospitalization)
  Sender: FDA-Public Use
  Company Number: PHHY2013US130559

PATIENT
  Age: 20 Month
  Sex: Male

DRUGS (3)
  1. ACETYLSALICYLIC ACID [Suspect]
     Dosage: 3 MG/KG/DAY
  2. PHENOBARBITAL [Concomitant]
     Indication: PARTIAL SEIZURES
  3. OXCARBAZEPINE [Concomitant]
     Indication: PARTIAL SEIZURES

REACTIONS (8)
  - Subdural haematoma [Recovered/Resolved]
  - Somnolence [Recovered/Resolved]
  - Hyperreflexia [Recovered/Resolved]
  - Hemiparesis [Unknown]
  - Muscular weakness [Recovering/Resolving]
  - Sensory loss [Recovering/Resolving]
  - Balance disorder [Recovered/Resolved]
  - Muscle spasticity [Unknown]
